FAERS Safety Report 18954209 (Version 1)
Quarter: 2021Q1

REPORT INFORMATION
  Report Type: Spontaneous
  Country: US (occurrence: US)
  Receive Date: 20210301
  Receipt Date: 20210301
  Transmission Date: 20210420
  Serious: No
  Sender: FDA-Public Use
  Company Number: US-BAYER-2021-082541

PATIENT
  Age: 75 Year
  Sex: Female

DRUGS (5)
  1. ALEVE [Suspect]
     Active Substance: NAPROXEN SODIUM
     Indication: MYALGIA
     Dosage: 2 DF
     Dates: start: 202102
  2. ALEVE [Suspect]
     Active Substance: NAPROXEN SODIUM
     Indication: CHILLS
  3. ALEVE [Suspect]
     Active Substance: NAPROXEN SODIUM
     Indication: NAUSEA
  4. ALEVE [Suspect]
     Active Substance: NAPROXEN SODIUM
     Indication: SWELLING FACE
  5. ALEVE [Suspect]
     Active Substance: NAPROXEN SODIUM
     Indication: PAIN

REACTIONS (2)
  - Rash [Recovering/Resolving]
  - Drug ineffective for unapproved indication [None]

NARRATIVE: CASE EVENT DATE: 20210203
